FAERS Safety Report 7102993-0 (Version None)
Quarter: 2010Q4

REPORT INFORMATION
  Report Type: 
  Country: None (occurrence: None)
  Receive Date: 20101115
  Receipt Date: 20080220
  Transmission Date: 20110411
  Serious: No
  Sender: FDA-Public Use
  Company Number: US-KINGPHARMUSA00001-K200800227

PATIENT
  Sex: Male

DRUGS (7)
  1. ALTACE [Suspect]
     Dosage: 2.5 MG, UNK
     Route: 048
     Dates: start: 20060101, end: 20060101
  2. ALTACE [Suspect]
     Dosage: 5 MG, UNK
     Route: 048
     Dates: start: 20060101, end: 20080220
  3. COREG [Concomitant]
     Dosage: 12.5 MG, BID
     Route: 048
  4. LIPITOR [Concomitant]
  5. ASPIRIN [Concomitant]
     Dosage: UNK, QD
  6. SIMVASTATIN [Concomitant]
     Dosage: 40 MG, QD
  7. SIMVASTATIN [Concomitant]
     Dosage: 5 MG, UNK
     Route: 048
     Dates: start: 20060101, end: 20080220

REACTIONS (1)
  - COUGH [None]
